FAERS Safety Report 22869519 (Version 3)
Quarter: 2023Q4

REPORT INFORMATION
  Report Type: Report from Study
  Country: US (occurrence: US)
  Receive Date: 20230828
  Receipt Date: 20231113
  Transmission Date: 20240109
  Serious: Yes (Hospitalization, Other)
  Sender: FDA-Public Use
  Company Number: US-ARGENX-2023-ARGX-US001520

PATIENT

DRUGS (3)
  1. VYVGART [Suspect]
     Active Substance: EFGARTIGIMOD ALFA-FCAB
     Indication: Myasthenia gravis
     Dosage: 10 MG/KG
     Route: 042
     Dates: start: 20230511, end: 20230601
  2. VYVGART [Suspect]
     Active Substance: EFGARTIGIMOD ALFA-FCAB
     Dosage: 10 MG/KG
     Route: 042
     Dates: start: 20230711, end: 20230725
  3. VYVGART [Suspect]
     Active Substance: EFGARTIGIMOD ALFA-FCAB
     Dosage: 10 MG/KG
     Route: 042
     Dates: start: 20230831, end: 20230921

REACTIONS (8)
  - Thymectomy [Unknown]
  - Stent placement [Unknown]
  - Rhinorrhoea [Unknown]
  - Diarrhoea [Unknown]
  - Dizziness [Recovered/Resolved]
  - Diplopia [Recovered/Resolved]
  - Productive cough [Unknown]
  - Nasopharyngitis [Unknown]

NARRATIVE: CASE EVENT DATE: 20230711
